FAERS Safety Report 7479200-2 (Version None)
Quarter: 2011Q2

REPORT INFORMATION
  Report Type: 
  Country: None (occurrence: None)
  Receive Date: 20110513
  Receipt Date: 20110506
  Transmission Date: 20111010
  Serious: Yes (Hospitalization)
  Sender: FDA-Public Use
  Company Number: A0918031A

PATIENT
  Age: 41 Year
  Sex: Male

DRUGS (5)
  1. HYDROCHLOROTHIAZIDE [Concomitant]
  2. ASPIRIN [Concomitant]
  3. AMOXIL [Concomitant]
  4. PRILOSEC [Concomitant]
  5. LOVAZA [Suspect]
     Dosage: 4CAP PER DAY
     Route: 048
     Dates: start: 20100301

REACTIONS (5)
  - RETCHING [None]
  - HAEMOPTYSIS [None]
  - LUNG INFECTION [None]
  - PRODUCT QUALITY ISSUE [None]
  - ERUCTATION [None]
